FAERS Safety Report 11672184 (Version 2)
Quarter: 2015Q4

REPORT INFORMATION
  Report Type: Spontaneous
  Country: US (occurrence: US)
  Receive Date: 20151028
  Receipt Date: 20151230
  Transmission Date: 20160304
  Serious: No
  Sender: FDA-Public Use
  Company Number: US-LEO PHARMA-237720

PATIENT
  Sex: Female

DRUGS (1)
  1. PICATO [Suspect]
     Active Substance: INGENOL MEBUTATE
     Indication: ACTINIC KERATOSIS
     Route: 061
     Dates: start: 20151011, end: 20151013

REACTIONS (5)
  - Eye swelling [Recovered/Resolved]
  - Application site swelling [Not Recovered/Not Resolved]
  - Drug administered at inappropriate site [Unknown]
  - Application site erythema [Recovered/Resolved]
  - Application site exfoliation [Recovered/Resolved]
